FAERS Safety Report 4877704-X (Version None)
Quarter: 2006Q1

REPORT INFORMATION
  Report Type: 
  Country: None (occurrence: None)
  Receive Date: 20060109
  Receipt Date: 20051228
  Transmission Date: 20060701
  Serious: Yes (Other)
  Sender: FDA-Public Use
  Company Number: 2005173241

PATIENT
  Age: 2 Year
  Sex: Male

DRUGS (1)
  1. BENADRYL ALLERGY/SINUS (DIPHENHYDRAMINE, PSEUDOEPHEDRINE) [Suspect]
     Indication: RHINORRHOEA
     Dosage: 1 TEASPOON EACH DAY, ORAL
     Route: 048
     Dates: start: 20051227

REACTIONS (4)
  - ABNORMAL BEHAVIOUR [None]
  - EYE DISORDER [None]
  - LETHARGY [None]
  - LOSS OF CONSCIOUSNESS [None]
